FAERS Safety Report 7282883-3 (Version None)
Quarter: 2011Q1

REPORT INFORMATION
  Report Type: 
  Country: None (occurrence: None)
  Receive Date: 20110128
  Receipt Date: 20110120
  Transmission Date: 20110831
  Serious: Yes (Death)
  Sender: FDA-Public Use
  Company Number: 1000018306

PATIENT
  Age: 57 Year
  Sex: Male

DRUGS (7)
  1. COCAINE(COCAINE) [Suspect]
  2. ACETAMINOPHEN [Suspect]
  3. DILTIAZEM HCL [Suspect]
  4. CYANIDE (CYANIDE) [Suspect]
  5. ETHANOL (ETHANOL) [Suspect]
  6. DIPHENHYDRAMINE (DIPHENHYDRAMINE) [Suspect]
  7. HYDROCODONE (HYDROCODONE) [Suspect]

REACTIONS (3)
  - CARDIO-RESPIRATORY ARREST [None]
  - MULTIPLE DRUG OVERDOSE INTENTIONAL [None]
  - COMPLETED SUICIDE [None]
